FAERS Safety Report 10591883 (Version 1)
Quarter: 2014Q4

REPORT INFORMATION
  Report Type: Spontaneous
  Country: NL (occurrence: NL)
  Receive Date: 20141119
  Receipt Date: 20141119
  Transmission Date: 20150529
  Serious: Yes (Death, Other)
  Sender: FDA-Public Use
  Company Number: NL-CIPLA LTD.-2014NL01893

PATIENT

DRUGS (1)
  1. CITALOPRAM [Suspect]
     Active Substance: CITALOPRAM HYDROBROMIDE

REACTIONS (5)
  - Encephalopathy [Unknown]
  - Sepsis [Unknown]
  - Cardiac arrest [Unknown]
  - Toxicity to various agents [Fatal]
  - Hypokalaemia [Unknown]
